FAERS Safety Report 10206569 (Version 1)
Quarter: 2014Q2

REPORT INFORMATION
  Report Type: Spontaneous
  Country: US (occurrence: US)
  Receive Date: 20140530
  Receipt Date: 20140530
  Transmission Date: 20141212
  Serious: No
  Sender: FDA-Public Use
  Company Number: US-GLAXOSMITHKLINE-A1038620A

PATIENT
  Age: 60 Year
  Sex: Female

DRUGS (3)
  1. FLOLAN [Suspect]
     Indication: PULMONARY ARTERIAL HYPERTENSION
     Dosage: 11NGKM CONTINUOUS
     Route: 042
     Dates: start: 20120813
  2. REVATIO [Concomitant]
  3. COUMADIN [Concomitant]

REACTIONS (5)
  - Rash [Unknown]
  - Pain in jaw [Not Recovered/Not Resolved]
  - Weight decreased [Unknown]
  - Hypersensitivity [Unknown]
  - Erythema [Unknown]
